FAERS Safety Report 6876646-8 (Version None)
Quarter: 2010Q3

REPORT INFORMATION
  Report Type: 
  Country: None (occurrence: None)
  Receive Date: 20100727
  Receipt Date: 20100721
  Transmission Date: 20110219
  Serious: Yes (Hospitalization, Disabling)
  Sender: FDA-Public Use
  Company Number: BR-ROCHE-684839

PATIENT
  Sex: Female
  Weight: 102 kg

DRUGS (17)
  1. TOCILIZUMAB [Suspect]
     Indication: RHEUMATOID ARTHRITIS
     Dosage: DOSE FORM: 40.8 ML
     Route: 042
     Dates: start: 20060425
  2. TOCILIZUMAB [Suspect]
     Route: 042
     Dates: start: 20060620
  3. TOCILIZUMAB [Suspect]
     Dosage: FORM REPORTED AS 40.8 ML
     Route: 042
     Dates: start: 20091109
  4. TOCILIZUMAB [Suspect]
     Route: 042
     Dates: start: 20091207
  5. TOCILIZUMAB [Suspect]
     Route: 042
     Dates: start: 20100104
  6. TOCILIZUMAB [Suspect]
     Dosage: LAST DOSE PRIOR TO SAE 01 FEB 2010,DOSEGE FORM40.8 ML, TEMPORARILY INTERRUPTED.
     Route: 042
     Dates: start: 20090201
  7. TOCILIZUMAB [Suspect]
     Dosage: THE PATIENT RECEIVED THIS DRUG IN DOUBLE- BLINDED MRA CORE STUDY WA18063
     Route: 042
  8. METHOTREXATE [Suspect]
     Indication: PRODUCT USED FOR UNKNOWN INDICATION
     Dosage: ROUTE: VO
     Route: 050
     Dates: start: 20050401
  9. METHOTREXATE [Suspect]
     Route: 050
     Dates: start: 20071211
  10. PREDNISONE [Suspect]
     Indication: PRODUCT USED FOR UNKNOWN INDICATION
     Route: 050
     Dates: start: 20070523
  11. PREDNISONE [Suspect]
     Route: 050
     Dates: start: 20100121
  12. PREDNISONE [Suspect]
     Route: 050
     Dates: start: 20100302, end: 20100502
  13. SULPHASALAZINE [Concomitant]
     Dosage: ROUTE: VO
     Dates: start: 20091014
  14. FOLIC ACID [Concomitant]
     Dosage: ROUTE: VO
     Dates: start: 20070109
  15. IBUPROFEN TABLETS [Concomitant]
     Dosage: ROUTE: VO, FREQUENCY: QD
     Dates: start: 20090811, end: 20100201
  16. IBUPROFEN TABLETS [Concomitant]
     Dates: start: 20100209
  17. ETORICOXIB [Concomitant]
     Dates: start: 20100202, end: 20100208

REACTIONS (2)
  - CELLULITIS [None]
  - SKIN ULCER [None]
